FAERS Safety Report 14955511 (Version 2)
Quarter: 2020Q4

REPORT INFORMATION
  Report Type: Other
  Country: US (occurrence: US)
  Receive Date: 20180531
  Receipt Date: 20201016
  Transmission Date: 20210113
  Serious: Yes (Other)
  Sender: FDA-Public Use
  Company Number: US-ROCHE-2129911

PATIENT
  Age: 51 Year
  Sex: Female

DRUGS (2)
  1. OCREVUS [Suspect]
     Active Substance: OCRELIZUMAB
     Indication: RELAPSING MULTIPLE SCLEROSIS
     Dosage: (PRESCRIBED 300 MG ONCE 24 WEEKS )
     Route: 042
  2. OCREVUS [Suspect]
     Active Substance: OCRELIZUMAB
     Dosage: RECIEVED FULL DOSE
     Route: 042
     Dates: start: 20180521

REACTIONS (4)
  - Dizziness [Unknown]
  - Hemiparesis [Unknown]
  - Muscular weakness [Unknown]
  - Paraesthesia [Unknown]

NARRATIVE: CASE EVENT DATE: 20180524
